FAERS Safety Report 21729637 (Version 1)
Quarter: 2022Q4

REPORT INFORMATION
  Report Type: Spontaneous
  Country: PT (occurrence: PT)
  Receive Date: 20221214
  Receipt Date: 20221214
  Transmission Date: 20230113
  Serious: Yes (Hospitalization, Other)
  Sender: FDA-Public Use
  Company Number: PT-ViiV Healthcare Limited-PT2022GSK180020

PATIENT

DRUGS (7)
  1. DOLUTEGRAVIR [Suspect]
     Active Substance: DOLUTEGRAVIR
     Indication: HIV infection
     Dosage: 50 MG, 1D
  2. DOLUTEGRAVIR [Suspect]
     Active Substance: DOLUTEGRAVIR
     Dosage: UNK
  3. PITAVASTATIN [Concomitant]
     Active Substance: PITAVASTATIN
     Indication: Dyslipidaemia
     Dosage: 1 MG, 1D
  4. SERTRALINE [Concomitant]
     Active Substance: SERTRALINE HYDROCHLORIDE
     Indication: Depression
     Dosage: 100 MG, 1D
  5. ABACAVIR [Concomitant]
     Active Substance: ABACAVIR
     Indication: HIV infection
     Dosage: 600 MG, 1D
  6. LAMIVUDINE [Concomitant]
     Active Substance: LAMIVUDINE
     Indication: HIV infection
     Dosage: 300 MG, 1D
  7. COBICISTAT\DARUNAVIR ETHANOLATE [Concomitant]
     Active Substance: COBICISTAT\DARUNAVIR ETHANOLATE
     Indication: HIV infection
     Dosage: UNK, 150/800 MG

REACTIONS (19)
  - Tubulointerstitial nephritis [Unknown]
  - Pruritus [Unknown]
  - Renal impairment [Not Recovered/Not Resolved]
  - Eosinophilia [Unknown]
  - Macule [Unknown]
  - Skin hyperpigmentation [Unknown]
  - Vomiting [Unknown]
  - Condition aggravated [Unknown]
  - Skin lesion [Unknown]
  - Proteinuria [Unknown]
  - Haematuria [Unknown]
  - Leukocyturia [Unknown]
  - Kidney fibrosis [Unknown]
  - Renal tubular atrophy [Unknown]
  - Hyperkeratosis [Unknown]
  - Acanthosis [Unknown]
  - Tissue infiltration [Unknown]
  - Dyshidrotic eczema [Unknown]
  - Acute kidney injury [Unknown]
